FAERS Safety Report 9083875 (Version 1)
Quarter: 2013Q1

REPORT INFORMATION
  Report Type: Spontaneous
  Country: US (occurrence: US)
  Receive Date: 20130131
  Receipt Date: 20130131
  Transmission Date: 20140127
  Serious: No
  Sender: FDA-Public Use
  Company Number: US-009507513-1301USA011017

PATIENT
  Sex: Female

DRUGS (1)
  1. MAXALT MLT [Suspect]
     Route: 048

REACTIONS (2)
  - Migraine [Not Recovered/Not Resolved]
  - Wrong technique in drug usage process [Unknown]
